FAERS Safety Report 6171813-3 (Version None)
Quarter: 2009Q2

REPORT INFORMATION
  Report Type: 
  Country: None (occurrence: None)
  Receive Date: 20090429
  Receipt Date: 20090417
  Transmission Date: 20091009
  Serious: Yes (Death, Hospitalization)
  Sender: FDA-Public Use
  Company Number: BR-ROCHE-625072

PATIENT
  Sex: Female
  Weight: 48 kg

DRUGS (5)
  1. CAPECITABINE [Suspect]
     Route: 065
  2. BERLISON [Suspect]
     Dosage: PERMANENTLY DISCONTINUED
     Route: 061
     Dates: start: 20090312, end: 20090329
  3. PURAN T4 [Concomitant]
     Dates: start: 20040101
  4. AAS [Concomitant]
     Dates: start: 20040101
  5. PROPRANOLOL [Concomitant]
     Dates: start: 20040101

REACTIONS (1)
  - DIARRHOEA [None]
